FAERS Safety Report 5519108-2 (Version None)
Quarter: 2007Q4

REPORT INFORMATION
  Report Type: 
  Country: None (occurrence: None)
  Receive Date: 20071114
  Receipt Date: 20071105
  Transmission Date: 20080405
  Serious: Yes (Other)
  Sender: FDA-Public Use
  Company Number: GXKR2007MY09504

PATIENT
  Age: 35 Year
  Sex: Female

DRUGS (2)
  1. PHENTERMINE [Suspect]
  2. ANESTHETICS, GENERAL (NO INGREDIENTS/SUBSTANCES) [Concomitant]

REACTIONS (5)
  - CARDIAC ENZYMES INCREASED [None]
  - ELECTROCARDIOGRAM ST SEGMENT ELEVATION [None]
  - HYPOTENSION [None]
  - MYOCARDIAL INFARCTION [None]
  - VENTRICULAR HYPOKINESIA [None]
